FAERS Safety Report 9742567 (Version 1)
Quarter: 2013Q4

REPORT INFORMATION
  Report Type: Spontaneous
  Country: US (occurrence: US)
  Receive Date: 20131210
  Receipt Date: 20131210
  Transmission Date: 20140711
  Serious: No
  Sender: FDA-Public Use
  Company Number: US-GILEAD-2009-0024519

PATIENT
  Sex: Male
  Weight: 43.54 kg

DRUGS (11)
  1. LETAIRIS [Suspect]
     Indication: PULMONARY ARTERIAL HYPERTENSION
     Route: 048
     Dates: start: 20090114
  2. COUMADIN [Concomitant]
  3. GUMMY SWIRLS CHEWABLES [Concomitant]
  4. ALBUTEROL INHALER [Concomitant]
  5. CERTIRIZINE [Concomitant]
  6. VENTAVIS [Concomitant]
  7. DILTIAZEM [Concomitant]
  8. REVATIO [Concomitant]
  9. OXYGEN [Concomitant]
  10. FLOVENT AER INHALER [Concomitant]
  11. DIGOXIN [Concomitant]

REACTIONS (4)
  - Contusion [Unknown]
  - Pruritus [Unknown]
  - Rhinorrhoea [Unknown]
  - Oropharyngeal pain [Unknown]
